FAERS Safety Report 4972690-6 (Version None)
Quarter: 2006Q1

REPORT INFORMATION
  Report Type: 
  Country: None (occurrence: None)
  Receive Date: 20060215
  Receipt Date: 20051010
  Transmission Date: 20060701
  Serious: No
  Sender: FDA-Public Use
  Company Number: US_0510123149

PATIENT
  Age: 82 Year
  Sex: Male

DRUGS (1)
  1. CIALIS [Suspect]

REACTIONS (1)
  - BLOOD PRESSURE INCREASED [None]
